FAERS Safety Report 6533269-8 (Version None)
Quarter: 2010Q1

REPORT INFORMATION
  Report Type: 
  Country: None (occurrence: None)
  Receive Date: 20100111
  Receipt Date: 20091229
  Transmission Date: 20100710
  Serious: No
  Sender: FDA-Public Use
  Company Number: US-ELI_LILLY_AND_COMPANY-US200911005578

PATIENT
  Sex: Male

DRUGS (5)
  1. CIALIS [Suspect]
     Indication: ERECTILE DYSFUNCTION
     Dosage: 20 MG, UNKNOWN
     Route: 065
     Dates: start: 20090801, end: 20091001
  2. LISINOPRIL [Concomitant]
  3. METOPROLOL [Concomitant]
  4. PRAVASTATIN [Concomitant]
  5. METFORMIN [Concomitant]

REACTIONS (1)
  - VISION BLURRED [None]
